FAERS Safety Report 8144527-8 (Version None)
Quarter: 2012Q1

REPORT INFORMATION
  Report Type: 
  Country: None (occurrence: None)
  Receive Date: 20120217
  Receipt Date: 20120208
  Transmission Date: 20120608
  Serious: Yes (Hospitalization)
  Sender: FDA-Public Use
  Company Number: JP-ROCHE-1039748

PATIENT
  Age: 65 Year
  Sex: Female
  Weight: 46 kg

DRUGS (5)
  1. COPEGUS [Suspect]
     Route: 048
     Dates: start: 20080601
  2. PEGASYS [Suspect]
     Indication: HEPATITIS C
     Route: 058
     Dates: start: 20080601, end: 20090601
  3. COPEGUS [Suspect]
     Indication: HEPATITIS C
     Route: 048
     Dates: start: 20060801, end: 20080201
  4. PEGINTERFERON ALFA-2B [Suspect]
     Indication: HEPATITIS C
     Route: 058
     Dates: start: 20060801, end: 20060101
  5. PEGINTERFERON ALFA-2B [Suspect]
     Route: 058
     Dates: start: 20060101, end: 20080201

REACTIONS (2)
  - PLATELET COUNT DECREASED [None]
  - NEUROMYELITIS OPTICA [None]
